FAERS Safety Report 20350458 (Version 1)
Quarter: 2022Q1

REPORT INFORMATION
  Report Type: Spontaneous
  Country: CN (occurrence: CN)
  Receive Date: 20220119
  Receipt Date: 20220119
  Transmission Date: 20220423
  Serious: Yes (Other)
  Sender: FDA-Public Use
  Company Number: CN-PFIZER INC-202200028588

PATIENT
  Age: 48 Year
  Sex: Female

DRUGS (1)
  1. LINEZOLID [Suspect]
     Active Substance: LINEZOLID
     Indication: Sepsis
     Dosage: 0.6 G, TWICE A DAY [EVERY 12 HOURS (Q12H)]
     Route: 041
     Dates: start: 20211211, end: 20211216

REACTIONS (5)
  - Temperature intolerance [Recovering/Resolving]
  - Chills [Recovered/Resolved]
  - Body temperature increased [Recovering/Resolving]
  - Abdominal discomfort [Recovering/Resolving]
  - Off label use [Unknown]

NARRATIVE: CASE EVENT DATE: 20211211
